FAERS Safety Report 16330272 (Version 2)
Quarter: 2019Q2

REPORT INFORMATION
  Report Type: Spontaneous
  Country: HU (occurrence: HU)
  Receive Date: 20190520
  Receipt Date: 20190521
  Transmission Date: 20190711
  Serious: Yes (Other)
  Sender: FDA-Public Use
  Company Number: HU-ALVOGEN-2019-ALVOGEN-099760

PATIENT
  Age: 15 Year
  Sex: Male

DRUGS (2)
  1. CLINDAMYCIN. [Suspect]
     Active Substance: CLINDAMYCIN
     Indication: STAPHYLOCOCCAL OSTEOMYELITIS
     Dosage: INTRAVENOUS CLINDAMYCIN MONOTHERAPY FOR 11 DAYS
     Route: 042
  2. CLINDAMYCIN. [Suspect]
     Active Substance: CLINDAMYCIN
     Indication: OSTEOMYELITIS
     Dosage: ORAL CLINDAMYCIN?MONOTHERAPY
     Route: 048

REACTIONS (5)
  - Bone disorder [Recovering/Resolving]
  - Abscess limb [Recovering/Resolving]
  - Resorption bone increased [Recovering/Resolving]
  - Pathogen resistance [Recovering/Resolving]
  - C-reactive protein increased [Recovering/Resolving]
